FAERS Safety Report 7586309-1 (Version None)
Quarter: 2011Q2

REPORT INFORMATION
  Report Type: 
  Country: None (occurrence: None)
  Receive Date: 20110630
  Receipt Date: 20110630
  Transmission Date: 20111010
  Serious: Yes (Hospitalization)
  Sender: FDA-Public Use
  Company Number: None

PATIENT
  Sex: Female
  Weight: 62.7 kg

DRUGS (3)
  1. COREG [Concomitant]
  2. CYCLOPHOSPHAMIDE [Suspect]
     Dosage: 4400 MG
  3. DOXORUBICIN HYDROCHLORIDE [Suspect]
     Dosage: 400 MG

REACTIONS (4)
  - CHOLELITHIASIS [None]
  - BILIARY DILATATION [None]
  - THROMBOCYTOPENIA [None]
  - BLOOD BILIRUBIN INCREASED [None]
